FAERS Safety Report 21256013 (Version 3)
Quarter: 2022Q3

REPORT INFORMATION
  Report Type: Spontaneous
  Country: US (occurrence: US)
  Receive Date: 20220825
  Receipt Date: 20220913
  Transmission Date: 20221026
  Serious: No
  Sender: FDA-Public Use
  Company Number: US-Dermavant-000084

PATIENT
  Age: 59 Year
  Sex: Male

DRUGS (1)
  1. TAPINAROF [Suspect]
     Active Substance: TAPINAROF
     Indication: Psoriasis
     Dates: start: 20220617, end: 20220629

REACTIONS (2)
  - Folliculitis [Unknown]
  - Rash [Unknown]

NARRATIVE: CASE EVENT DATE: 20220628
